FAERS Safety Report 7467903-5 (Version None)
Quarter: 2011Q2

REPORT INFORMATION
  Report Type: 
  Country: None (occurrence: None)
  Receive Date: 20110509
  Receipt Date: 20110217
  Transmission Date: 20111010
  Serious: No
  Sender: FDA-Public Use
  Company Number: US-ALEXION-A201100224

PATIENT
  Sex: Female

DRUGS (4)
  1. SOLIRIS [Suspect]
     Indication: PAROXYSMAL NOCTURNAL HAEMOGLOBINURIA
     Dosage: 600 MG, QW
     Route: 042
     Dates: start: 20090101, end: 20090101
  2. FOLIC ACID [Concomitant]
     Dosage: 1 MG QD
     Route: 048
  3. SOLIRIS [Suspect]
     Dosage: 900 MG, Q2W
     Route: 042
     Dates: start: 20090101
  4. IRON [Concomitant]
     Dosage: 1 TABLET QD
     Route: 048

REACTIONS (3)
  - RENAL FUNCTION TEST ABNORMAL [None]
  - BACK PAIN [None]
  - HAEMOGLOBIN DECREASED [None]
